FAERS Safety Report 12730435 (Version 1)
Quarter: 2016Q3

REPORT INFORMATION
  Report Type: Spontaneous
  Country: US (occurrence: US)
  Receive Date: 20160909
  Receipt Date: 20160909
  Transmission Date: 20161109
  Serious: No
  Sender: FDA-Public Use
  Company Number: US-ALLERGAN-1648445

PATIENT
  Age: 57 Year
  Sex: Female

DRUGS (2)
  1. FIORINAL WITH CODEINE [Suspect]
     Active Substance: ASPIRIN\BUTALBITAL\CAFFEINE\CODEINE PHOSPHATE
     Indication: MIGRAINE
     Dosage: 1 OR 2 CAPSULES, ONCE DAILY AS NEEDED
     Route: 048
  2. FIORINAL WITH CODEINE [Suspect]
     Active Substance: ASPIRIN\BUTALBITAL\CAFFEINE\CODEINE PHOSPHATE
     Indication: HEADACHE
     Dosage: 1 OR 2 CAPSULES, ONCE DAILY AS NEEDED
     Route: 048
     Dates: start: 20160309

REACTIONS (6)
  - Feeling abnormal [Recovered/Resolved]
  - Headache [Recovered/Resolved]
  - Somnolence [Recovered/Resolved]
  - Chest discomfort [Recovered/Resolved]
  - Pharyngeal oedema [Recovered/Resolved]
  - Inappropriate schedule of drug administration [Unknown]

NARRATIVE: CASE EVENT DATE: 201603
